FAERS Safety Report 8378900-X (Version None)
Quarter: 2012Q2

REPORT INFORMATION
  Report Type: 
  Country: None (occurrence: None)
  Receive Date: 20120522
  Receipt Date: 20120522
  Transmission Date: 20120825
  Serious: Yes (Disabling)
  Sender: FDA-Public Use
  Company Number: None

PATIENT
  Sex: Male
  Weight: 77.1115 kg

DRUGS (1)
  1. LEVOFLOXACIN [Suspect]
     Indication: SINUSITIS
     Dosage: 250 MG 1 PER DAY
     Dates: start: 20111230, end: 20120108

REACTIONS (2)
  - TENDONITIS [None]
  - NEUROPATHY PERIPHERAL [None]
